FAERS Safety Report 20527928 (Version 1)
Quarter: 2022Q1

REPORT INFORMATION
  Report Type: Spontaneous
  Country: GB (occurrence: GB)
  Receive Date: 20220228
  Receipt Date: 20220228
  Transmission Date: 20220424
  Serious: Yes (Other)
  Sender: FDA-Public Use
  Company Number: GB-MHRA-MED-202202171345298030-KGVYE

PATIENT
  Age: 1 Year
  Sex: Male

DRUGS (1)
  1. MONTELUKAST [Suspect]
     Active Substance: MONTELUKAST SODIUM
     Indication: Asthma
     Dosage: UNK

REACTIONS (3)
  - Sleep terror [Recovering/Resolving]
  - Aggression [Recovering/Resolving]
  - Anger [Recovering/Resolving]
